FAERS Safety Report 10334884 (Version 1)
Quarter: 2014Q3

REPORT INFORMATION
  Report Type: Spontaneous
  Country: GB (occurrence: GB)
  Receive Date: 20140723
  Receipt Date: 20140723
  Transmission Date: 20150326
  Serious: Yes (Hospitalization, Other)
  Sender: FDA-Public Use
  Company Number: PHHY2014GB087629

PATIENT
  Age: 48 Year
  Sex: Female

DRUGS (8)
  1. WARFARIN [Concomitant]
     Active Substance: WARFARIN
  2. TRAMADOL [Concomitant]
     Active Substance: TRAMADOL
  3. METHOTREXATE [Concomitant]
     Active Substance: METHOTREXATE
  4. SUMATRIPTAN [Concomitant]
     Active Substance: SUMATRIPTAN
  5. FOLIC ACID. [Concomitant]
     Active Substance: FOLIC ACID
  6. CO-AMOXICLAV [Suspect]
     Active Substance: AMOXICILLIN\CLAVULANIC ACID
     Indication: ABSCESS
     Dosage: 1.2 G
     Route: 042
     Dates: start: 20140703, end: 20140703
  7. AMITRIPTYLINE [Concomitant]
     Active Substance: AMITRIPTYLINE
  8. ATORVASTATIN [Concomitant]
     Active Substance: ATORVASTATIN

REACTIONS (3)
  - Dermatitis allergic [Recovered/Resolved]
  - Hypotension [Unknown]
  - Pruritus [Unknown]

NARRATIVE: CASE EVENT DATE: 20140703
